FAERS Safety Report 15164238 (Version 11)
Quarter: 2021Q3

REPORT INFORMATION
  Report Type: Spontaneous
  Country: US (occurrence: US)
  Receive Date: 20180719
  Receipt Date: 20210825
  Transmission Date: 20211014
  Serious: Yes (Other)
  Sender: FDA-Public Use
  Company Number: US-PFIZER INC-2018288942

PATIENT
  Sex: Female
  Weight: 71.66 kg

DRUGS (1)
  1. PREMARIN [Suspect]
     Active Substance: ESTROGENS, CONJUGATED
     Dosage: 0.3 MG, UNK

REACTIONS (10)
  - Arthritis [Recovered/Resolved]
  - Emotional disorder [Recovered/Resolved]
  - Anxiety [Unknown]
  - Dysgraphia [Unknown]
  - Gait disturbance [Recovered/Resolved]
  - Arthropathy [Recovered/Resolved]
  - Palpitations [Recovered/Resolved]
  - Hand fracture [Unknown]
  - Product prescribing error [Unknown]
  - Dizziness [Recovered/Resolved]
